FAERS Safety Report 14242729 (Version 1)
Quarter: 2017Q4

REPORT INFORMATION
  Report Type: Spontaneous
  Country: RU (occurrence: RU)
  Receive Date: 20171201
  Receipt Date: 20171201
  Transmission Date: 20180321
  Serious: Yes (Other)
  Sender: FDA-Public Use
  Company Number: RU-ASTRAZENECA-2017SF00467

PATIENT
  Age: 50 Year
  Sex: Male
  Weight: 87 kg

DRUGS (7)
  1. BISOPROLOL [Concomitant]
     Active Substance: BISOPROLOL
  2. BRILINTA [Suspect]
     Active Substance: TICAGRELOR
     Indication: STENT PLACEMENT
     Route: 048
     Dates: start: 201511
  3. ROSUVASTATIN. [Concomitant]
     Active Substance: ROSUVASTATIN
  4. PLAVIX [Concomitant]
     Active Substance: CLOPIDOGREL BISULFATE
  5. INSULIN [Concomitant]
     Active Substance: INSULIN NOS
  6. VALSARTAN. [Concomitant]
     Active Substance: VALSARTAN
  7. THROMBO ASS [Concomitant]
     Active Substance: ASPIRIN

REACTIONS (3)
  - Off label use [Unknown]
  - Product use issue [Unknown]
  - Vascular stent occlusion [Not Recovered/Not Resolved]

NARRATIVE: CASE EVENT DATE: 201710
